FAERS Safety Report 25928636 (Version 1)
Quarter: 2025Q4

REPORT INFORMATION
  Report Type: Spontaneous
  Country: US (occurrence: US)
  Receive Date: 20251016
  Receipt Date: 20251016
  Transmission Date: 20260117
  Serious: No
  Sender: CIPLA
  Company Number: US-CIPLA LTD.-2025US12150

PATIENT

DRUGS (3)
  1. ALENDRONATE [Suspect]
     Active Substance: ALENDRONATE SODIUM
     Indication: Osteoporosis
     Dosage: UNK, ONCE A WEEK
     Route: 065
  2. DUPIXENT [Suspect]
     Active Substance: DUPILUMAB
     Indication: Eczema
     Dosage: 300 MILLIGRAM, QD (STRENGTH: 300 MG/2ML), LOADING DOSE
     Route: 058
     Dates: start: 20241202
  3. DUPIXENT [Suspect]
     Active Substance: DUPILUMAB
     Dosage: 300 MILLIGRAM, QOW (EVERY OTHER WEEK)-SINGLE DOSE PREFILLED PEN (MAINTAINENCE DOSE)
     Route: 058
     Dates: start: 202412

REACTIONS (3)
  - Cough [Unknown]
  - Dyspnoea [Unknown]
  - Therapeutic response shortened [Unknown]
